FAERS Safety Report 7650887-4 (Version None)
Quarter: 2011Q3

REPORT INFORMATION
  Report Type: 
  Country: None (occurrence: None)
  Receive Date: 20110802
  Receipt Date: 20110725
  Transmission Date: 20111222
  Serious: Yes (Other)
  Sender: FDA-Public Use
  Company Number: US-BAYER-2011-064792

PATIENT
  Age: 62 Year
  Sex: Male

DRUGS (1)
  1. AVELOX [Suspect]
     Indication: LUNG INFECTION
     Dosage: 400 MG, ONCE
     Route: 048
     Dates: start: 20110719, end: 20110720

REACTIONS (7)
  - VOMITING [None]
  - BLOOD PRESSURE INCREASED [None]
  - HYPERSENSITIVITY [None]
  - PARAESTHESIA [None]
  - HYPERHIDROSIS [None]
  - FEELING HOT [None]
  - DYSPNOEA [None]
